FAERS Safety Report 10602273 (Version 2)
Quarter: 2014Q4

REPORT INFORMATION
  Report Type: Spontaneous
  Country: DE (occurrence: DE)
  Receive Date: 20141124
  Receipt Date: 20141203
  Transmission Date: 20150529
  Serious: Yes (Other)
  Sender: FDA-Public Use
  Company Number: DE-PFIZER INC-2014318156

PATIENT
  Age: 47 Year
  Sex: Female

DRUGS (1)
  1. ZENTROPIL [Suspect]
     Active Substance: PHENYTOIN
     Indication: EPILEPSY
     Dosage: UNK
     Dates: start: 1981

REACTIONS (5)
  - Overdose [Unknown]
  - Visual field defect [Not Recovered/Not Resolved]
  - Cerebellar atrophy [Unknown]
  - Toxicity to various agents [Not Recovered/Not Resolved]
  - Visual acuity reduced [Not Recovered/Not Resolved]
